FAERS Safety Report 9343118 (Version 1)
Quarter: 2013Q2

REPORT INFORMATION
  Report Type: Spontaneous
  Country: US (occurrence: US)
  Receive Date: 20130611
  Receipt Date: 20130611
  Transmission Date: 20140414
  Serious: Yes (Death)
  Sender: FDA-Public Use
  Company Number: US-GILEAD-2013-0076869

PATIENT
  Sex: Female

DRUGS (9)
  1. LETAIRIS [Suspect]
     Indication: PULMONARY HYPERTENSION
     Dosage: 10 MG, QD
     Dates: start: 20081223, end: 20130605
  2. LASIX                              /00032601/ [Concomitant]
     Dates: start: 20120530, end: 20130605
  3. ADCIRCA [Concomitant]
     Dates: start: 20110512, end: 20130605
  4. IRON [Concomitant]
     Dates: start: 20110114, end: 20130605
  5. FOLIC ACID [Concomitant]
     Dates: start: 20110114, end: 20130605
  6. REMODULIN [Concomitant]
     Dates: start: 20081219, end: 20130605
  7. PRILOSEC                           /00661201/ [Concomitant]
     Dates: start: 20081219, end: 20130605
  8. KLOR-CON [Concomitant]
     Dates: start: 20110708, end: 20130605
  9. SPIRONOLACTONE [Concomitant]
     Dates: start: 20120530, end: 20130605

REACTIONS (1)
  - Disease progression [Fatal]
